FAERS Safety Report 5499258-X (Version None)
Quarter: 2007Q4

REPORT INFORMATION
  Report Type: 
  Country: None (occurrence: None)
  Receive Date: 20071026
  Receipt Date: 20071017
  Transmission Date: 20080405
  Serious: Yes (Other)
  Sender: FDA-Public Use
  Company Number: US-JNJFOC-20071005321

PATIENT
  Sex: Male
  Weight: 65.77 kg

DRUGS (3)
  1. SUDAFED 24 HOUR [Suspect]
     Route: 048
  2. SUDAFED 24 HOUR [Suspect]
     Indication: SINUS CONGESTION
     Route: 048
  3. AZITHROMYCIN [Concomitant]
     Route: 065

REACTIONS (3)
  - HALLUCINATION, AUDITORY [None]
  - INSOMNIA [None]
  - SUICIDAL IDEATION [None]
